FAERS Safety Report 20207305 (Version 1)
Quarter: 2021Q4

REPORT INFORMATION
  Report Type: Spontaneous
  Country: US (occurrence: US)
  Receive Date: 20211220
  Receipt Date: 20211220
  Transmission Date: 20220304
  Serious: No
  Sender: FDA-Public Use
  Company Number: US-NOVEN PHARMACEUTICALS, INC.-2021US001167

PATIENT
  Sex: Female

DRUGS (2)
  1. ESTRADIOL [Suspect]
     Active Substance: ESTRADIOL
     Indication: Alopecia
     Dosage: 0.1 MG, UNK
     Route: 062
     Dates: start: 2018
  2. OXYCODONE [Concomitant]
     Active Substance: OXYCODONE
     Indication: Product used for unknown indication
     Dosage: UNK

REACTIONS (3)
  - Unevaluable event [Unknown]
  - Therapeutic product effective for unapproved indication [Recovered/Resolved]
  - Product adhesion issue [Recovered/Resolved]
